FAERS Safety Report 6371990-5 (Version None)
Quarter: 2009Q3

REPORT INFORMATION
  Report Type: 
  Country: None (occurrence: None)
  Receive Date: 20090917
  Receipt Date: 20090904
  Transmission Date: 20100115
  Serious: Yes (Death)
  Sender: FDA-Public Use
  Company Number: ADR17082009

PATIENT
  Age: 45 Year
  Sex: Female

DRUGS (5)
  1. CITALOPRAM HYDROBROMIDE [Suspect]
     Indication: DEPRESSION
     Dates: start: 20031001
  2. ABILIFY [Concomitant]
  3. KEMADRIN [Concomitant]
  4. TEGRETOL [Concomitant]
  5. KEPPRA [Concomitant]

REACTIONS (3)
  - AGGRESSION [None]
  - POOR PERSONAL HYGIENE [None]
  - WEIGHT INCREASED [None]
